FAERS Safety Report 21925838 (Version 1)
Quarter: 2023Q1

REPORT INFORMATION
  Report Type: Spontaneous
  Country: US (occurrence: None)
  Receive Date: 20230127
  Receipt Date: 20230127
  Transmission Date: 20230418
  Serious: Yes (Other)
  Sender: FDA-Public Use
  Company Number: None

PATIENT
  Sex: Male

DRUGS (6)
  1. SIMPONI [Suspect]
     Active Substance: GOLIMUMAB
     Indication: Psoriatic arthropathy
     Dosage: OTHER QUANTITY : 50MG/0.5ML;?FREQUENCY : MONTHLY;?
     Route: 058
     Dates: start: 20210224
  2. AMLODIPINE TAB [Concomitant]
  3. ETODOLAC TAB [Concomitant]
  4. METHOTREXATE [Concomitant]
     Active Substance: METHOTREXATE
  5. PERCOCET TAB [Concomitant]
  6. TYLENOL TAB [Concomitant]

REACTIONS (2)
  - Nonspecific reaction [None]
  - Myocardial infarction [None]
